FAERS Safety Report 5565311-5 (Version None)
Quarter: 2007Q4

REPORT INFORMATION
  Report Type: 
  Country: None (occurrence: None)
  Receive Date: 20071218
  Receipt Date: 20030328
  Transmission Date: 20080405
  Serious: Yes (Death, Congenital Anomaly)
  Sender: FDA-Public Use
  Company Number: FR-ROCHE-334889

PATIENT
  Sex: Female
  Weight: 1 kg

DRUGS (4)
  1. SAQUINAVIR [Suspect]
     Indication: HIV INFECTION
  2. RITONAVIR [Suspect]
     Indication: HIV INFECTION
  3. DIDANOSINE [Suspect]
     Indication: HIV INFECTION
  4. STAVUDINE [Suspect]
     Indication: HIV INFECTION

REACTIONS (2)
  - DEATH [None]
  - TRISOMY 18 [None]
